FAERS Safety Report 6120339-1 (Version None)
Quarter: 2009Q1

REPORT INFORMATION
  Report Type: 
  Country: None (occurrence: None)
  Receive Date: 20090317
  Receipt Date: 20090303
  Transmission Date: 20090719
  Serious: Yes (Life-Threatening, Hospitalization, Other)
  Sender: FDA-Public Use
  Company Number: GB-RANBAXY-2009RR-22501

PATIENT
  Sex: Female

DRUGS (8)
  1. CIPROFLOXACIN [Suspect]
     Indication: GASTROENTERITIS
     Dosage: 250 MG, UNK
     Route: 048
     Dates: start: 20060109, end: 20060112
  2. ATENOLOL [Concomitant]
     Dosage: 50 MG, UNK
  3. BENDROFLUAZIDE [Concomitant]
     Dosage: 2.5 MG, UNK
  4. LORAZEPAM [Concomitant]
     Dosage: 1 MG, UNK
  5. MEBEVERINE [Concomitant]
     Dosage: 405 MG, UNK
     Route: 048
  6. PROCHLORPERAZINE [Concomitant]
     Dosage: 9 MG, UNK
     Route: 048
  7. ZOLPIDEM [Concomitant]
     Dosage: 10 MG, UNK
  8. DIORALYTE [Concomitant]
     Route: 048

REACTIONS (1)
  - HEPATORENAL SYNDROME [None]
